FAERS Safety Report 8564101-9 (Version None)
Quarter: 2012Q3

REPORT INFORMATION
  Report Type: 
  Country: None (occurrence: None)
  Receive Date: 20120723
  Receipt Date: 20120610
  Transmission Date: 20120928
  Serious: Yes (Hospitalization)
  Sender: FDA-Public Use
  Company Number: ALK_02565_2012

PATIENT
  Age: 28 Year
  Sex: Male

DRUGS (7)
  1. MORPHINE [Concomitant]
  2. VIVITROL [Suspect]
     Indication: DRUG DEPENDENCE
     Dosage: (INTRAMUSCULAR)
     Route: 030
     Dates: start: 20120514
  3. NALTREXONE HYDROCHLORIDE [Suspect]
     Indication: DRUG DEPENDENCE
     Dosage: (INTRAMUSCULAR) ; (INTRAMUSCULAR) ; (INTRAMUSCULAR) ; (INTRAMUSCULAR)
     Route: 030
     Dates: start: 20120514, end: 20120514
  4. NALTREXONE HYDROCHLORIDE [Suspect]
     Indication: DRUG DEPENDENCE
     Dosage: (INTRAMUSCULAR) ; (INTRAMUSCULAR) ; (INTRAMUSCULAR) ; (INTRAMUSCULAR)
     Route: 030
     Dates: start: 20120514, end: 20120514
  5. NALTREXONE HYDROCHLORIDE [Suspect]
     Indication: DRUG DEPENDENCE
     Dosage: (INTRAMUSCULAR) ; (INTRAMUSCULAR) ; (INTRAMUSCULAR) ; (INTRAMUSCULAR)
     Route: 030
     Dates: start: 20120514, end: 20120514
  6. NALTREXONE HYDROCHLORIDE [Suspect]
     Indication: DRUG DEPENDENCE
     Dosage: (INTRAMUSCULAR) ; (INTRAMUSCULAR) ; (INTRAMUSCULAR) ; (INTRAMUSCULAR)
     Route: 030
     Dates: start: 20120514, end: 20120514
  7. NUVIGIL [Concomitant]

REACTIONS (2)
  - INSOMNIA [None]
  - MANIA [None]
